FAERS Safety Report 8643848 (Version 7)
Quarter: 2013Q3

REPORT INFORMATION
  Report Type: Spontaneous
  Country: US (occurrence: US)
  Receive Date: 20120629
  Receipt Date: 20130801
  Transmission Date: 20140515
  Serious: Yes (Hospitalization, Disabling, Other)
  Sender: FDA-Public Use
  Company Number: US-009507513-1206USA04637

PATIENT
  Sex: Female
  Weight: 56.69 kg

DRUGS (10)
  1. FOSAMAX [Suspect]
     Indication: OSTEOPOROSIS
     Dosage: 70 MG, UNK
     Route: 048
     Dates: start: 199806, end: 200607
  2. FOSAMAX [Suspect]
     Indication: SPINAL COMPRESSION FRACTURE
     Dosage: 10 MG, UNK
     Route: 048
  3. FOSAMAX [Suspect]
     Indication: BONE DENSITY ABNORMAL
  4. MIACALCIN [Concomitant]
     Indication: OSTEOPENIA
  5. CALCIUM (UNSPECIFIED) [Concomitant]
  6. VITAMIN D (UNSPECIFIED) [Concomitant]
  7. CITRACAL + D [Concomitant]
     Indication: BONE DENSITY ABNORMAL
     Dosage: UNK, BID
     Dates: start: 2000
  8. FEMHRT [Concomitant]
     Indication: MENOPAUSE
     Dosage: 1MG-5MICROGRAMS
     Dates: start: 2005
  9. LOTENSION (BENAZEPRIL HYDROCHLORIDE) [Concomitant]
     Indication: HYPERTENSION
     Dosage: 10 MG, UNK
     Dates: start: 2000
  10. HYDROCHLOROTHIAZIDE (+) TRIAMTERENE [Concomitant]
     Indication: HYPERTENSION
     Dosage: 25MG-37.5MG
     Dates: start: 2000

REACTIONS (48)
  - Femur fracture [Not Recovered/Not Resolved]
  - Osteoporosis [Not Recovered/Not Resolved]
  - Femur fracture [Not Recovered/Not Resolved]
  - Low turnover osteopathy [Not Recovered/Not Resolved]
  - Surgery [Unknown]
  - Squamous cell carcinoma of skin [Unknown]
  - Spinal laminectomy [Unknown]
  - Open reduction of fracture [Not Recovered/Not Resolved]
  - Foot operation [Unknown]
  - Intramedullary rod insertion [Unknown]
  - Femur fracture [Not Recovered/Not Resolved]
  - Uterine dilation and curettage [Unknown]
  - Intramedullary rod insertion [Unknown]
  - Bone graft [Unknown]
  - Internal fixation of fracture [Unknown]
  - Therapy cessation [Unknown]
  - Femur fracture [Not Recovered/Not Resolved]
  - Femur fracture [Unknown]
  - Foot fracture [Unknown]
  - Actinic keratosis [Unknown]
  - Skin lesion [Unknown]
  - Telangiectasia [Unknown]
  - Sleep disorder [Unknown]
  - Chondrocalcinosis pyrophosphate [Unknown]
  - Supraventricular tachycardia [Unknown]
  - Rotator cuff syndrome [Unknown]
  - Chest pain [Unknown]
  - Actinic keratosis [Unknown]
  - Telangiectasia [Unknown]
  - Hepatic cyst [Unknown]
  - Pulmonary bulla [Unknown]
  - Tooth fracture [Unknown]
  - Vaginal haemorrhage [Unknown]
  - Migraine [Unknown]
  - Depression [Unknown]
  - Hypercalciuria [Unknown]
  - Impaired healing [Unknown]
  - Body height decreased [Unknown]
  - Bone metabolism disorder [Unknown]
  - Fall [Unknown]
  - Insomnia [Not Recovered/Not Resolved]
  - Rhinitis allergic [Unknown]
  - Osteopenia [Not Recovered/Not Resolved]
  - Herpes simplex [Not Recovered/Not Resolved]
  - Pharyngitis [Unknown]
  - Allergic sinusitis [Unknown]
  - Grief reaction [Not Recovered/Not Resolved]
  - Mass excision [Unknown]
